FAERS Safety Report 17594496 (Version 1)
Quarter: 2020Q1

REPORT INFORMATION
  Report Type: Spontaneous
  Country: CZ (occurrence: CZ)
  Receive Date: 20200327
  Receipt Date: 20200327
  Transmission Date: 20200409
  Serious: Yes (Death, Other)
  Sender: FDA-Public Use
  Company Number: CZ-ELI_LILLY_AND_COMPANY-CZ202003012879

PATIENT
  Age: 69 Year
  Sex: Female

DRUGS (1)
  1. GEMCITABINE HYDROCHLORIDE. [Suspect]
     Active Substance: GEMCITABINE HYDROCHLORIDE
     Indication: PANCREATIC CARCINOMA STAGE IV
     Dosage: UNK, CYCLICAL
     Route: 065

REACTIONS (7)
  - Malignant neoplasm progression [Unknown]
  - Nausea [Recovered/Resolved]
  - Asthenia [Unknown]
  - Death [Fatal]
  - Gamma-glutamyltransferase increased [Unknown]
  - Ascites [Unknown]
  - Cachexia [Unknown]
